FAERS Safety Report 7757817-5 (Version None)
Quarter: 2011Q3

REPORT INFORMATION
  Report Type: 
  Country: None (occurrence: None)
  Receive Date: 20110918
  Receipt Date: 20110907
  Transmission Date: 20111222
  Serious: Yes (Other)
  Sender: FDA-Public Use
  Company Number: JP-ASTRAZENECA-2011SE54620

PATIENT
  Age: 84 Year
  Sex: Female

DRUGS (4)
  1. DEPAS [Concomitant]
  2. SEROQUEL [Suspect]
     Route: 048
  3. GRAMALIL [Suspect]
     Route: 048
  4. TOFRANIL [Concomitant]

REACTIONS (4)
  - LOSS OF CONSCIOUSNESS [None]
  - BLOOD PRESSURE DECREASED [None]
  - CYANOSIS [None]
  - SALIVARY HYPERSECRETION [None]
